FAERS Safety Report 7889197-9 (Version None)
Quarter: 2011Q4

REPORT INFORMATION
  Report Type: 
  Country: None (occurrence: None)
  Receive Date: 20111103
  Receipt Date: 20111024
  Transmission Date: 20120403
  Serious: Yes (Other)
  Sender: FDA-Public Use
  Company Number: JP-PFIZER INC-2011256021

PATIENT
  Sex: Female

DRUGS (1)
  1. MYLOTARG [Suspect]
     Indication: ACUTE MYELOID LEUKAEMIA
     Dosage: 9MG/M2

REACTIONS (4)
  - GENERAL PHYSICAL HEALTH DETERIORATION [None]
  - SEPSIS [None]
  - VENOOCCLUSIVE LIVER DISEASE [None]
  - MULTI-ORGAN FAILURE [None]
